FAERS Safety Report 9816289 (Version 1)
Quarter: 2014Q1

REPORT INFORMATION
  Report Type: Spontaneous
  Country: US (occurrence: US)
  Receive Date: 20140114
  Receipt Date: 20140114
  Transmission Date: 20141002
  Serious: Yes (Hospitalization, Other)
  Sender: FDA-Public Use
  Company Number: US-PFIZER INC-2014007163

PATIENT
  Sex: Female

DRUGS (2)
  1. AZULFIDINE [Suspect]
     Dosage: UNK
  2. CELEBREX [Suspect]
     Dosage: UNK

REACTIONS (9)
  - Diarrhoea [Unknown]
  - Dehydration [Unknown]
  - Hernia [Unknown]
  - Rheumatoid arthritis [Unknown]
  - Decreased appetite [Unknown]
  - Weight decreased [Unknown]
  - Muscle spasms [Unknown]
  - Abdominal pain upper [Unknown]
  - Gastrointestinal disorder [Unknown]
